FAERS Safety Report 25787416 (Version 1)
Quarter: 2025Q3

REPORT INFORMATION
  Report Type: Spontaneous
  Country: US (occurrence: US)
  Receive Date: 20250910
  Receipt Date: 20250910
  Transmission Date: 20251020
  Serious: No
  Sender: SANOFI AVENTIS
  Company Number: US-SANOFI-02645991

PATIENT
  Age: 61 Year
  Sex: Male

DRUGS (5)
  1. DUPIXENT [Suspect]
     Active Substance: DUPILUMAB
     Indication: Nasal polyps
  2. AZELASTINE [Concomitant]
     Active Substance: AZELASTINE
  3. BUDESONIDE [Concomitant]
     Active Substance: BUDESONIDE
  4. EPIPEN [Concomitant]
     Active Substance: EPINEPHRINE
  5. XHANCE [Concomitant]
     Active Substance: FLUTICASONE PROPIONATE

REACTIONS (1)
  - Peripheral swelling [Unknown]
